FAERS Safety Report 16134626 (Version 2)
Quarter: 2019Q2

REPORT INFORMATION
  Report Type: Spontaneous
  Country: KP (occurrence: KP)
  Receive Date: 20190329
  Receipt Date: 20190403
  Transmission Date: 20190711
  Serious: Yes (Death, Other)
  Sender: FDA-Public Use
  Company Number: KP-PFIZER INC-2019134563

PATIENT
  Sex: Female

DRUGS (6)
  1. LEVOFLOXACIN. [Suspect]
     Active Substance: LEVOFLOXACIN
     Indication: TUBERCULOSIS
     Dosage: UNK
     Dates: start: 20180514
  2. LINEZOLID. [Suspect]
     Active Substance: LINEZOLID
     Indication: TUBERCULOSIS
     Dosage: UNK
     Dates: start: 20180514
  3. CAPREOMYCIN [Suspect]
     Active Substance: CAPREOMYCIN
     Indication: TUBERCULOSIS
     Dosage: UNK
     Dates: start: 20180514
  4. BEDAQUILINE [Suspect]
     Active Substance: BEDAQUILINE
     Indication: TUBERCULOSIS
     Dosage: UNK
     Dates: start: 20180514
  5. CLOFAZIMINE [Suspect]
     Active Substance: CLOFAZIMINE
     Indication: TUBERCULOSIS
     Dosage: UNK
     Dates: start: 20180514
  6. DELTYBA [Suspect]
     Active Substance: DELAMANID
     Indication: TUBERCULOSIS
     Dosage: UNK
     Dates: start: 20180514

REACTIONS (2)
  - Respiratory failure [Fatal]
  - Tuberculosis [Fatal]
